FAERS Safety Report 7904915-9 (Version None)
Quarter: 2011Q4

REPORT INFORMATION
  Report Type: 
  Country: None (occurrence: None)
  Receive Date: 20111109
  Receipt Date: 20111102
  Transmission Date: 20120403
  Serious: Yes (Hospitalization)
  Sender: FDA-Public Use
  Company Number: PHHY2011JP097756

PATIENT
  Age: 45 Year
  Sex: Female

DRUGS (2)
  1. GABAPENTIN [Concomitant]
     Indication: NEURALGIA
     Dosage: 600 MG, UNK
     Route: 048
  2. CARBAMAZEPINE [Suspect]
     Indication: NEURALGIA
     Dosage: 100 MG, DAILY
     Route: 048

REACTIONS (4)
  - PNEUMONIA [None]
  - NEUROLEPTIC MALIGNANT SYNDROME [None]
  - DEPRESSION [None]
  - TOXICITY TO VARIOUS AGENTS [None]
